FAERS Safety Report 8868452 (Version 1)
Quarter: 2012Q4

REPORT INFORMATION
  Report Type: 
  Country: US (occurrence: US)
  Receive Date: 20121026
  Receipt Date: 20121026
  Transmission Date: 20130627
  Serious: No
  Sender: FDA-Public Use
  Company Number: US-AMGEN-USASP2012041676

PATIENT
  Sex: Female

DRUGS (9)
  1. ENBREL [Suspect]
     Indication: PRODUCT USED FOR UNKNOWN INDICATION
     Dosage: 50 mg, qwk
     Route: 058
  2. METHOTREXATE [Concomitant]
     Dosage: 2.5 mg, UNK
  3. IBUPROFEN [Concomitant]
     Dosage: 200 mg, UNK
  4. LEVOTHYROXINE [Concomitant]
     Dosage: 88 mcg
  5. CHROMIUM PICOLINAT [Concomitant]
     Dosage: 200 mcg
  6. MULTIVITAMIN                       /00097801/ [Concomitant]
     Dosage: UNK
  7. ADRENAL [Concomitant]
     Dosage: UNK
  8. SILYMARIN [Concomitant]
  9. PROBIOTIC PEARLS [Concomitant]

REACTIONS (1)
  - Sinusitis [Unknown]
